FAERS Safety Report 5510119-X (Version None)
Quarter: 2007Q4

REPORT INFORMATION
  Report Type: 
  Country: None (occurrence: None)
  Receive Date: 20071108
  Receipt Date: 20071105
  Transmission Date: 20080405
  Serious: Yes (Death, Life-Threatening, Hospitalization)
  Sender: FDA-Public Use
  Company Number: FR-ASTRAZENECA-2005CG01697

PATIENT
  Age: 25651 Day
  Sex: Male

DRUGS (12)
  1. IRESSA [Suspect]
     Indication: NON-SMALL CELL LUNG CANCER
     Route: 048
     Dates: start: 20050817
  2. TRINIPATCH [Concomitant]
  3. MOLSIDOMIN [Concomitant]
  4. ASPIRIN [Concomitant]
  5. SIMVASTATIN [Concomitant]
  6. DILTIAZEM [Concomitant]
  7. LEVOTHYROXINE SODIUM [Concomitant]
  8. DEXTROPROPOXYPHENE [Concomitant]
  9. DOMPERIDONE [Concomitant]
  10. PREDNISONE TAB [Concomitant]
  11. GABAPENTIN [Concomitant]
  12. PANTOPRAZOLE SODIUM [Concomitant]

REACTIONS (2)
  - GASTROINTESTINAL HAEMORRHAGE [None]
  - RESPIRATORY DISTRESS [None]
